FAERS Safety Report 19567138 (Version 1)
Quarter: 2021Q3

REPORT INFORMATION
  Report Type: Spontaneous
  Country: GB (occurrence: GB)
  Receive Date: 20210716
  Receipt Date: 20210716
  Transmission Date: 20211014
  Serious: Yes (Other)
  Sender: FDA-Public Use
  Company Number: GB-ACCORD-231582

PATIENT
  Age: 68 Year
  Sex: Male
  Weight: 65 kg

DRUGS (1)
  1. CLOPIDOGREL [Suspect]
     Active Substance: CLOPIDOGREL BISULFATE
     Indication: ANGINA PECTORIS
     Route: 048
     Dates: start: 20190913, end: 20210406

REACTIONS (1)
  - Blister [Recovering/Resolving]

NARRATIVE: CASE EVENT DATE: 20210202
